FAERS Safety Report 17664817 (Version 3)
Quarter: 2020Q2

REPORT INFORMATION
  Report Type: Spontaneous
  Country: US (occurrence: US)
  Receive Date: 20200414
  Receipt Date: 20200605
  Transmission Date: 20200713
  Serious: No
  Sender: FDA-Public Use
  Company Number: US-PFIZER INC-2020152065

PATIENT
  Age: 80 Year
  Sex: Female

DRUGS (3)
  1. ZINC. [Suspect]
     Active Substance: ZINC
     Indication: CORONAVIRUS INFECTION
     Dosage: 220 MG, 3X/DAY
     Dates: start: 20200407
  2. VITAMIN C [Suspect]
     Active Substance: ASCORBIC ACID
     Indication: CORONAVIRUS INFECTION
     Dosage: 1000 MG, 3X/DAY
     Dates: start: 20200407
  3. ZITHROMAX [Suspect]
     Active Substance: AZITHROMYCIN DIHYDRATE
     Indication: COVID-19
     Dosage: 500 MG, DAILY (SCHEDULED FOR 5 DAYS)
     Route: 048
     Dates: start: 20200407

REACTIONS (4)
  - Off label use [Unknown]
  - Drug effective for unapproved indication [Unknown]
  - Diarrhoea [Unknown]
  - Product use in unapproved indication [Unknown]

NARRATIVE: CASE EVENT DATE: 20200407
